FAERS Safety Report 18444486 (Version 8)
Quarter: 2021Q1

REPORT INFORMATION
  Report Type: Spontaneous
  Country: US (occurrence: US)
  Receive Date: 20201030
  Receipt Date: 20210113
  Transmission Date: 20210419
  Serious: No
  Sender: FDA-Public Use
  Company Number: US-BIOGEN-2020BI00940650

PATIENT
  Sex: Male

DRUGS (1)
  1. TYSABRI [Suspect]
     Active Substance: NATALIZUMAB
     Indication: MULTIPLE SCLEROSIS
     Route: 065
     Dates: start: 20200807

REACTIONS (6)
  - Memory impairment [Recovered/Resolved]
  - Distractibility [Recovered/Resolved]
  - Mobility decreased [Recovered/Resolved]
  - Dysgraphia [Recovered/Resolved]
  - Multiple sclerosis [Unknown]
  - Inappropriate schedule of product administration [Unknown]
